FAERS Safety Report 16089803 (Version 2)
Quarter: 2019Q1

REPORT INFORMATION
  Report Type: Report from Study
  Country: JP (occurrence: JP)
  Receive Date: 20190319
  Receipt Date: 20190329
  Transmission Date: 20190418
  Serious: Yes (Death)
  Sender: FDA-Public Use
  Company Number: JP-DSJP-DSJ-2019-109401

PATIENT

DRUGS (11)
  1. MICARDIS [Concomitant]
     Active Substance: TELMISARTAN
     Dosage: 20MG/DAY
     Route: 048
     Dates: end: 20190128
  2. CADUET [Concomitant]
     Active Substance: AMLODIPINE BESYLATE\ATORVASTATIN CALCIUM
     Dosage: 1DF/DAY
     Route: 048
     Dates: start: 20180209, end: 20190128
  3. MAINTATE [Concomitant]
     Active Substance: BISOPROLOL FUMARATE
     Indication: ATRIAL FIBRILLATION
     Dosage: 1.25MG/DAY
     Route: 048
     Dates: start: 20171223, end: 20180125
  4. LUPRAC [Concomitant]
     Active Substance: TORSEMIDE
     Dosage: 2MG/DAY
     Route: 048
     Dates: start: 20170922, end: 20190128
  5. EDOXABAN [Suspect]
     Active Substance: EDOXABAN TOSYLATE
     Indication: ATRIAL FIBRILLATION
     Dosage: 30 MG, QD
     Route: 048
     Dates: start: 20170424
  6. MICAMLO [Concomitant]
     Active Substance: AMLODIPINE BESYLATE\TELMISARTAN
     Dosage: 1DF/DAY
     Route: 048
     Dates: end: 20190128
  7. CARDENALIN [Concomitant]
     Active Substance: DOXAZOSIN MESYLATE
     Dosage: 1MG/DAY
     Route: 048
     Dates: end: 20180208
  8. LIOVEL [Concomitant]
     Active Substance: ALOGLIPTIN BENZOATE\PIOGLITAZONE HYDROCHLORIDE
     Dosage: 1DF/DAY
     Route: 048
     Dates: end: 20180330
  9. TRAZENTA [Concomitant]
     Active Substance: LINAGLIPTIN
     Dosage: 5MG/DAY
     Route: 048
     Dates: start: 20180324, end: 20190128
  10. CADUET [Concomitant]
     Active Substance: AMLODIPINE BESYLATE\ATORVASTATIN CALCIUM
     Dosage: 1DF/DAY
     Route: 048
     Dates: end: 20180208
  11. AMARYL [Concomitant]
     Active Substance: GLIMEPIRIDE
     Dosage: 1.5MG/DAY
     Route: 048
     Dates: end: 20190128

REACTIONS (1)
  - Sudden death [Fatal]

NARRATIVE: CASE EVENT DATE: 20190210
